FAERS Safety Report 7839998-8 (Version None)
Quarter: 2011Q4

REPORT INFORMATION
  Report Type: 
  Country: None (occurrence: None)
  Receive Date: 20111025
  Receipt Date: 20111014
  Transmission Date: 20120403
  Serious: Yes (Disabling, Other)
  Sender: FDA-Public Use
  Company Number: ZA-AMGEN-ZAFSP2011051098

PATIENT
  Age: 26 Year
  Sex: Female
  Weight: 45 kg

DRUGS (2)
  1. CELEBREX [Concomitant]
     Indication: PAIN
     Dosage: UNK
     Dates: start: 20101201
  2. ENBREL [Suspect]
     Indication: ANKYLOSING SPONDYLITIS
     Dosage: 25 MG, 2X/WEEK
     Route: 058
     Dates: start: 20101201, end: 20110922

REACTIONS (1)
  - OEDEMA PERIPHERAL [None]
